FAERS Safety Report 19571847 (Version 1)
Quarter: 2021Q3

REPORT INFORMATION
  Report Type: Spontaneous
  Country: US (occurrence: US)
  Receive Date: 20210716
  Receipt Date: 20210716
  Transmission Date: 20211014
  Serious: Yes (Hospitalization)
  Sender: FDA-Public Use
  Company Number: US-GLAXOSMITHKLINE-US2021151000

PATIENT
  Sex: Female

DRUGS (1)
  1. TRELEGY ELLIPTA [Suspect]
     Active Substance: FLUTICASONE FUROATE\UMECLIDINIUM BROMIDE\VILANTEROL TRIFENATATE
     Indication: PRODUCT USED FOR UNKNOWN INDICATION
     Dosage: FOR 2 MONTHS

REACTIONS (5)
  - Foot fracture [Unknown]
  - Fall [Unknown]
  - Hypoaesthesia [Not Recovered/Not Resolved]
  - Nervousness [Not Recovered/Not Resolved]
  - Lower limb fracture [Unknown]
